FAERS Safety Report 12986690 (Version 1)
Quarter: 2016Q4

REPORT INFORMATION
  Report Type: Spontaneous
  Country: RU (occurrence: RU)
  Receive Date: 20161130
  Receipt Date: 20161130
  Transmission Date: 20170207
  Serious: Yes (Other)
  Sender: FDA-Public Use
  Company Number: RU-ASTRAZENECA-2016SF26028

PATIENT
  Age: 56 Year
  Sex: Female
  Weight: 80 kg

DRUGS (8)
  1. FUROSEMIDE. [Concomitant]
     Active Substance: FUROSEMIDE
  2. VEROSPIRON [Concomitant]
     Active Substance: SPIRONOLACTONE
  3. SIMVASTATIN. [Concomitant]
     Active Substance: SIMVASTATIN
  4. BRILINTA [Suspect]
     Active Substance: TICAGRELOR
     Indication: MYOCARDIAL INFARCTION
     Route: 048
     Dates: start: 201508
  5. LISINOPRIL. [Concomitant]
     Active Substance: LISINOPRIL
  6. OMEPRAZOLE. [Concomitant]
     Active Substance: OMEPRAZOLE
  7. VERAPAMIL [Concomitant]
     Active Substance: VERAPAMIL HYDROCHLORIDE
  8. ACECARDOL [Concomitant]
     Active Substance: ASPIRIN

REACTIONS (6)
  - Acute myocardial infarction [Recovered/Resolved]
  - Contusion [Unknown]
  - Insomnia [Not Recovered/Not Resolved]
  - Pulmonary oedema [Recovered/Resolved]
  - Ear haemorrhage [Recovered/Resolved]
  - Epistaxis [Recovered/Resolved]

NARRATIVE: CASE EVENT DATE: 20161009
